FAERS Safety Report 18915765 (Version 1)
Quarter: 2021Q1

REPORT INFORMATION
  Report Type: Spontaneous
  Country: CN (occurrence: CN)
  Receive Date: 20210219
  Receipt Date: 20210219
  Transmission Date: 20210420
  Serious: No
  Sender: FDA-Public Use
  Company Number: CN-LUPIN PHARMACEUTICALS INC.-2021-01990

PATIENT
  Age: 17 Year
  Sex: Female

DRUGS (19)
  1. CYTARABINE. [Suspect]
     Active Substance: CYTARABINE
     Indication: CASTLEMAN^S DISEASE
     Dosage: UNK (PART OF HYPER?CVAD?B AND COAP REGIMENS)
     Route: 065
  2. ADRIAMYCIN [Suspect]
     Active Substance: DOXORUBICIN HYDROCHLORIDE
     Indication: HUMAN HERPESVIRUS 8 INFECTION
     Dosage: UNK (INITIALLY TWO DOSES IN VAD REGIMEN)
     Route: 065
  3. BORTEZOMIB. [Suspect]
     Active Substance: BORTEZOMIB
     Indication: CASTLEMAN^S DISEASE
     Dosage: UNK,TWO CYCLES ALONG WITH DEXAMETHASONE
     Route: 065
     Dates: start: 2011
  4. VINCRISTINE [Suspect]
     Active Substance: VINCRISTINE
     Indication: HUMAN HERPESVIRUS 8 INFECTION
     Dosage: 0.5 MILLIGRAM, QD,ON DAYS 1?4; ON REPEAT VAD REGIMEN
     Route: 065
     Dates: start: 2011
  5. EPIRUBICIN [Suspect]
     Active Substance: EPIRUBICIN
     Indication: CASTLEMAN^S DISEASE
     Dosage: UNK (PART OF CHOP REGIMEN)
     Route: 065
  6. DEXAMETHASONE. [Suspect]
     Active Substance: DEXAMETHASONE
     Indication: CASTLEMAN^S DISEASE
     Dosage: UNK,INITIALLY TWO DOSES IN VAD REGIMEN
     Route: 065
  7. ADRIAMYCIN [Suspect]
     Active Substance: DOXORUBICIN HYDROCHLORIDE
     Indication: CASTLEMAN^S DISEASE
     Dosage: 40 MILLIGRAM, UNK (ON DAYS 1?4 OF CYCLE)
     Route: 065
     Dates: start: 2011
  8. METHYLPREDNISOLONE. [Suspect]
     Active Substance: METHYLPREDNISOLONE
     Indication: CASTLEMAN^S DISEASE
  9. VINCRISTINE [Suspect]
     Active Substance: VINCRISTINE
     Indication: CASTLEMAN^S DISEASE
     Dosage: UNK (PART OF CHOP, COAP AND VAD REGIMEN)
     Route: 065
  10. METHOTREXATE. [Suspect]
     Active Substance: METHOTREXATE
     Indication: HUMAN HERPESVIRUS 8 INFECTION
  11. DEXAMETHASONE. [Suspect]
     Active Substance: DEXAMETHASONE
     Indication: HUMAN HERPESVIRUS 8 INFECTION
     Dosage: 40 MILLIGRAM, QD,ON DAYS 1?4 OF CYCLE; ON REPEAT VAD REGIMEN
     Route: 065
     Dates: start: 2011
  12. CYTARABINE. [Suspect]
     Active Substance: CYTARABINE
     Indication: HUMAN HERPESVIRUS 8 INFECTION
  13. EPIRUBICIN [Suspect]
     Active Substance: EPIRUBICIN
     Indication: HUMAN HERPESVIRUS 8 INFECTION
  14. CYCLOPHOSPHAMIDE. [Suspect]
     Active Substance: CYCLOPHOSPHAMIDE
     Indication: CASTLEMAN^S DISEASE
     Dosage: UNK (PART OF CHOP AND COAP REGIMEN)
     Route: 065
  15. DEXAMETHASONE. [Suspect]
     Active Substance: DEXAMETHASONE
     Dosage: UNK,TWO CYCLES ALONG WITH BORTEZOMIB
     Route: 065
     Dates: start: 2011
  16. BORTEZOMIB. [Suspect]
     Active Substance: BORTEZOMIB
     Indication: HUMAN HERPESVIRUS 8 INFECTION
  17. METHYLPREDNISOLONE. [Suspect]
     Active Substance: METHYLPREDNISOLONE
     Indication: HUMAN HERPESVIRUS 8 INFECTION
     Dosage: UNK (PART OF CHOP AND COAP REGIMENS)
     Route: 065
  18. CYCLOPHOSPHAMIDE. [Suspect]
     Active Substance: CYCLOPHOSPHAMIDE
     Indication: HUMAN HERPESVIRUS 8 INFECTION
  19. METHOTREXATE. [Suspect]
     Active Substance: METHOTREXATE
     Indication: CASTLEMAN^S DISEASE
     Dosage: UNK (PART OF HYPER?CVAD?B REGIMEN)
     Route: 065

REACTIONS (1)
  - Off label use [Unknown]
